FAERS Safety Report 15273218 (Version 3)
Quarter: 2020Q1

REPORT INFORMATION
  Report Type: Report from Study
  Country: US (occurrence: US)
  Receive Date: 20180813
  Receipt Date: 20200220
  Transmission Date: 20200409
  Serious: Yes (Hospitalization)
  Sender: FDA-Public Use
  Company Number: US-ACTELION-A-NJ2018-177074

PATIENT
  Age: 28 Year
  Sex: Male

DRUGS (1)
  1. UPTRAVI [Suspect]
     Active Substance: SELEXIPAG
     Indication: PULMONARY ARTERIAL HYPERTENSION
     Dosage: 800 MCG, BID
     Route: 048
     Dates: start: 20180405

REACTIONS (4)
  - Transfusion [Unknown]
  - Blood bilirubin increased [Unknown]
  - Sickle cell anaemia with crisis [Unknown]
  - Sickle cell anaemia [Unknown]

NARRATIVE: CASE EVENT DATE: 20180731
